FAERS Safety Report 6932116-X (Version None)
Quarter: 2010Q3

REPORT INFORMATION
  Report Type: 
  Country: None (occurrence: None)
  Receive Date: 20100819
  Receipt Date: 20100810
  Transmission Date: 20110219
  Serious: Yes (Other)
  Sender: FDA-Public Use
  Company Number: A0874910A

PATIENT

DRUGS (1)
  1. ARIXTRA [Suspect]
     Route: 065

REACTIONS (2)
  - HEPARIN-INDUCED THROMBOCYTOPENIA [None]
  - PLATELET COUNT DECREASED [None]
